FAERS Safety Report 15397381 (Version 1)
Quarter: 2018Q3

REPORT INFORMATION
  Report Type: Spontaneous
  Country: US (occurrence: US)
  Receive Date: 20180913
  Receipt Date: 20180913
  Transmission Date: 20181010
  Serious: No
  Sender: FDA-Public Use
  Company Number: None

PATIENT
  Age: 40 Year
  Sex: Male
  Weight: 77.56 kg

DRUGS (1)
  1. MAVYRET [Suspect]
     Active Substance: GLECAPREVIR\PIBRENTASVIR
     Indication: HEPATITIS C
     Dosage: ONCE DAILY  WITH FOOD AS DIRECTED
     Route: 048
     Dates: start: 201807

REACTIONS (3)
  - Fatigue [None]
  - Intestinal obstruction [None]
  - Somnambulism [None]
